FAERS Safety Report 21529452 (Version 1)
Quarter: 2022Q4

REPORT INFORMATION
  Report Type: Spontaneous
  Country: US (occurrence: US)
  Receive Date: 20221031
  Receipt Date: 20221031
  Transmission Date: 20230113
  Serious: Yes (Other)
  Sender: FDA-Public Use
  Company Number: US-UCBSA-2022061961

PATIENT
  Age: 17 Year
  Sex: Female

DRUGS (4)
  1. FINTEPLA [Interacting]
     Active Substance: FENFLURAMINE
     Indication: Product used for unknown indication
     Dosage: 18.5 MG PER DAY
     Dates: start: 2020
  2. FLUVOXAMINE [Interacting]
     Active Substance: FLUVOXAMINE
     Indication: Obsessive-compulsive disorder
     Dosage: UNK
     Dates: end: 202210
  3. FLUOXETINE [Concomitant]
     Active Substance: FLUOXETINE HYDROCHLORIDE
     Indication: Obsessive-compulsive disorder
  4. TRAZODONE [Concomitant]
     Active Substance: TRAZODONE HYDROCHLORIDE
     Indication: Insomnia

REACTIONS (6)
  - Obsessive-compulsive disorder [Not Recovered/Not Resolved]
  - Perseveration [Not Recovered/Not Resolved]
  - Emotional disorder [Not Recovered/Not Resolved]
  - Insomnia [Not Recovered/Not Resolved]
  - Anticonvulsant drug level increased [Unknown]
  - Labelled drug-drug interaction medication error [Unknown]
